FAERS Safety Report 14904958 (Version 1)
Quarter: 2018Q2

REPORT INFORMATION
  Report Type: Spontaneous
  Country: US (occurrence: US)
  Receive Date: 20180517
  Receipt Date: 20180517
  Transmission Date: 20180711
  Serious: No
  Sender: FDA-Public Use
  Company Number: US-SA-2017SA213123

PATIENT
  Age: 63 Year
  Sex: Female

DRUGS (2)
  1. HUMALOG [Concomitant]
     Active Substance: INSULIN LISPRO
     Route: 065
  2. LANTUS [Suspect]
     Active Substance: INSULIN GLARGINE
     Indication: TYPE 2 DIABETES MELLITUS
     Dosage: DOSE:40 UNIT(S)
     Route: 058

REACTIONS (4)
  - Eye irritation [Unknown]
  - Malaise [Unknown]
  - Fatigue [Unknown]
  - Extra dose administered [Unknown]

NARRATIVE: CASE EVENT DATE: 201710
